FAERS Safety Report 8708365 (Version 4)
Quarter: 2013Q2

REPORT INFORMATION
  Report Type: Report from Study
  Country: JP (occurrence: JP)
  Receive Date: 20120806
  Receipt Date: 20130412
  Transmission Date: 20140414
  Serious: Yes (Life-Threatening)
  Sender: FDA-Public Use
  Company Number: JP-NOVOPROD-356633

PATIENT
  Age: 10 Year
  Sex: Male
  Weight: 22.7 kg

DRUGS (2)
  1. NORDITROPIN FLEXPROCHU 10 MG/ML [Suspect]
     Indication: GROWTH HORMONE DEFICIENCY
     Dosage: 5.6 MG, QW
     Route: 058
     Dates: start: 20090601, end: 20111121
  2. DESMOPRESSIN [Concomitant]
     Indication: ENURESIS
     Dosage: UNK
     Route: 045
     Dates: start: 20110517, end: 20111121

REACTIONS (1)
  - Precursor T-lymphoblastic lymphoma/leukaemia recurrent [Recovering/Resolving]
